FAERS Safety Report 8962883 (Version 5)
Quarter: 2013Q1

REPORT INFORMATION
  Report Type: Report from Study
  Country: TH (occurrence: TH)
  Receive Date: 20121214
  Receipt Date: 20130125
  Transmission Date: 20140127
  Serious: Yes (Hospitalization)
  Sender: FDA-Public Use
  Company Number: TH-PFIZER INC-2012306773

PATIENT
  Age: 43 Year
  Sex: Male
  Weight: 56.3 kg

DRUGS (1)
  1. TOFACITINIB CITRATE [Suspect]
     Indication: RHEUMATOID ARTHRITIS
     Dosage: 10 MG, 2X/DAY
     Route: 048
     Dates: start: 20100830, end: 20121127

REACTIONS (3)
  - Mediastinal mass [Recovering/Resolving]
  - Pericarditis [Recovering/Resolving]
  - Pneumonia [Recovering/Resolving]
